FAERS Safety Report 4989044-9 (Version None)
Quarter: 2006Q2

REPORT INFORMATION
  Report Type: 
  Country: None (occurrence: None)
  Receive Date: 20060425
  Receipt Date: 20060414
  Transmission Date: 20061013
  Serious: Yes (Other)
  Sender: FDA-Public Use
  Company Number: 2006052140

PATIENT
  Sex: Female
  Weight: 104.3273 kg

DRUGS (2)
  1. MEDROXYPROGESTERONE [Suspect]
     Indication: CONTRACEPTION
     Dosage: SEE IMAGE
     Dates: start: 19970101, end: 19970101
  2. MEDROXYPROGESTERONE [Suspect]
     Indication: CONTRACEPTION
     Dosage: SEE IMAGE
     Dates: start: 20060414, end: 20060414

REACTIONS (4)
  - DIABETES MELLITUS [None]
  - DRUG ADMINISTRATION ERROR [None]
  - INCORRECT DOSE ADMINISTERED [None]
  - UNDERDOSE [None]
